FAERS Safety Report 18024467 (Version 1)
Quarter: 2020Q3

REPORT INFORMATION
  Report Type: Spontaneous
  Country: US (occurrence: US)
  Receive Date: 20200714
  Receipt Date: 20200714
  Transmission Date: 20201103
  Serious: No
  Sender: FDA-Public Use
  Company Number: None

PATIENT
  Age: 76 Year
  Sex: Male
  Weight: 83.25 kg

DRUGS (23)
  1. GABAPENTIN. [Concomitant]
     Active Substance: GABAPENTIN
  2. VASCEPA [Concomitant]
     Active Substance: ICOSAPENT ETHYL
  3. ACETAMINOPHEN. [Concomitant]
     Active Substance: ACETAMINOPHEN
  4. PRAVASTATIN. [Concomitant]
     Active Substance: PRAVASTATIN
  5. ASPIRIN 81 [Concomitant]
     Active Substance: ASPIRIN
  6. VENLAFAXINE [Concomitant]
     Active Substance: VENLAFAXINE HYDROCHLORIDE
  7. AMLODIPINE [Concomitant]
     Active Substance: AMLODIPINE BESYLATE
  8. CELECOXIB. [Concomitant]
     Active Substance: CELECOXIB
  9. TAMSULOSIN [Concomitant]
     Active Substance: TAMSULOSIN
  10. NYSTATIN RINSE [Concomitant]
  11. ATIVAN [Concomitant]
     Active Substance: LORAZEPAM
  12. VENTOLIN [Concomitant]
     Active Substance: ALBUTEROL SULFATE
  13. FENOFIBRATE. [Concomitant]
     Active Substance: FENOFIBRATE
  14. OXIGAN [Concomitant]
  15. VITAMIN D [Concomitant]
     Active Substance: VITAMIN D NOS
  16. METOPROLOL. [Concomitant]
     Active Substance: METOPROLOL
  17. FINASTERIDE. [Concomitant]
     Active Substance: FINASTERIDE
  18. NYSTATIN/TRIAMCINOLONE [Concomitant]
     Active Substance: NYSTATIN\TRIAMCINOLONE
  19. TRELEGY ELLIPTA [Suspect]
     Active Substance: FLUTICASONE FUROATE\UMECLIDINIUM BROMIDE\VILANTEROL TRIFENATATE
     Indication: CHRONIC OBSTRUCTIVE PULMONARY DISEASE
     Dosage: ?          QUANTITY:1 INHALATION(S);?
     Route: 055
  20. PROPELINE GLYCOL [Concomitant]
  21. CLOBETASOL [Concomitant]
     Active Substance: CLOBETASOL
  22. OMEPRAZOLE. [Concomitant]
     Active Substance: OMEPRAZOLE
  23. CALCIUM CARBONATE. [Concomitant]
     Active Substance: CALCIUM CARBONATE

REACTIONS (2)
  - Pneumonia [None]
  - Stomatitis [None]

NARRATIVE: CASE EVENT DATE: 20200623
